FAERS Safety Report 5877991-5 (Version None)
Quarter: 2008Q3

REPORT INFORMATION
  Report Type: 
  Country: None (occurrence: None)
  Receive Date: 20080911
  Receipt Date: 20080904
  Transmission Date: 20090109
  Serious: Yes (Hospitalization)
  Sender: FDA-Public Use
  Company Number: CH-ASTRAZENECA-2008PK01984

PATIENT
  Age: 87 Year
  Sex: Female
  Weight: 65 kg

DRUGS (3)
  1. SEROQUEL [Suspect]
     Indication: PERSONALITY DISORDER
     Dosage: 2X12.5  MG PLUS  1X6.25 MG DAILY
     Route: 048
     Dates: start: 20071101, end: 20080803
  2. SEROQUEL [Suspect]
     Dosage: 1X12.5  MG PLUS  2X6.25 MG DAILY
     Route: 048
     Dates: start: 20080804
  3. AXURA [Concomitant]
     Indication: DEMENTIA
     Route: 048
     Dates: start: 20080301, end: 20080602

REACTIONS (3)
  - BALANCE DISORDER [None]
  - OFF LABEL USE [None]
  - SOMNOLENCE [None]
